FAERS Safety Report 9503972 (Version 3)
Quarter: 2013Q3

REPORT INFORMATION
  Report Type: Spontaneous
  Country: JP (occurrence: JP)
  Receive Date: 20130906
  Receipt Date: 20130930
  Transmission Date: 20140515
  Serious: Yes (Hospitalization)
  Sender: FDA-Public Use
  Company Number: JP-009507513-1307JPN000198

PATIENT
  Age: 61 Year
  Sex: Female
  Weight: 44 kg

DRUGS (3)
  1. ESLAX [Suspect]
     Indication: NEUROMUSCULAR BLOCKING THERAPY
     Dosage: 50 MG DAILY, DIVIDED DOSE FREQUENCY U
     Route: 042
     Dates: start: 20130403, end: 20130403
  2. PROPOFOL [Suspect]
     Indication: SEDATION
     Dosage: 100 MG DAILY, DIVIDED DOSE FREQUENCY U
     Route: 042
     Dates: start: 20130403, end: 20130403
  3. ULTIVA [Suspect]
     Dosage: UNK
     Route: 042
     Dates: start: 20130403

REACTIONS (3)
  - Oedema mouth [Recovered/Resolved]
  - Blood pressure increased [Recovered/Resolved]
  - Erythema [Recovered/Resolved]
